FAERS Safety Report 9911713 (Version 2)
Quarter: 2014Q1

REPORT INFORMATION
  Report Type: Spontaneous
  Country: GB (occurrence: GB)
  Receive Date: 20140219
  Receipt Date: 20140219
  Transmission Date: 20141002
  Serious: Yes (Other)
  Sender: FDA-Public Use
  Company Number: CHPA2013GB012091

PATIENT
  Sex: 0

DRUGS (1)
  1. OTRIVIN [Suspect]
     Route: 045

REACTIONS (6)
  - Suicide attempt [Unknown]
  - Malaise [Unknown]
  - Erythema [Unknown]
  - Swelling [Unknown]
  - Nasal discomfort [Unknown]
  - Drug ineffective [Unknown]
